FAERS Safety Report 4591154-5 (Version None)
Quarter: 2005Q1

REPORT INFORMATION
  Report Type: 
  Country: None (occurrence: None)
  Receive Date: 20050225
  Receipt Date: 20050216
  Transmission Date: 20050727
  Serious: Yes (Hospitalization, Other)
  Sender: FDA-Public Use
  Company Number: JP-JNJFOC-20040502107

PATIENT
  Sex: Male

DRUGS (17)
  1. LEUSTATIN [Suspect]
     Route: 041
     Dates: start: 20030926, end: 20030930
  2. MICAFUNGIN SODIUM [Suspect]
     Route: 041
  3. MICAFUNGIN SODIUM [Suspect]
     Indication: PYREXIA
     Route: 041
  4. AMIKACIN SULFATE [Suspect]
     Route: 041
  5. AMIKACIN SULFATE [Suspect]
     Indication: PYREXIA
     Route: 041
  6. FLUCONAZOLE [Concomitant]
     Indication: INFECTION PROPHYLAXIS
     Route: 049
     Dates: start: 20030926, end: 20031215
  7. SULFAMETHOXAZOLE + TRIMETHOPRIM [Concomitant]
     Route: 049
     Dates: start: 20030926, end: 20031215
  8. SULFAMETHOXAZOLE + TRIMETHOPRIM [Concomitant]
     Indication: INFECTION PROPHYLAXIS
     Route: 049
     Dates: start: 20030926, end: 20031215
  9. ZOPICLONE [Concomitant]
     Indication: INSOMNIA
     Route: 049
     Dates: start: 20030926, end: 20031215
  10. LOXOPROFEN SODIUM [Concomitant]
     Indication: PYREXIA
     Route: 049
     Dates: start: 20030926, end: 20031123
  11. TEPRENONE [Concomitant]
     Route: 049
     Dates: start: 20030926, end: 20031123
  12. CEFOZOPRAN HYDROCHLORIDE [Concomitant]
     Indication: PYREXIA
     Route: 041
     Dates: start: 20031014, end: 20031019
  13. MEROPENEM TRIHYDRATE [Concomitant]
     Route: 041
  14. MEROPENEM TRIHYDRATE [Concomitant]
     Indication: PYREXIA
     Route: 041
  15. FAMOTIDINE [Concomitant]
     Indication: GASTRITIS
     Route: 049
     Dates: start: 20031023, end: 20031215
  16. CEFTAZIDIME [Concomitant]
     Indication: PYREXIA
     Route: 041
     Dates: start: 20031107, end: 20031110
  17. MINOCYCLINE HYDROCHLORIDE [Concomitant]
     Indication: PYREXIA
     Route: 041
     Dates: start: 20031107, end: 20031110

REACTIONS (15)
  - ANOREXIA [None]
  - BLOOD ALKALINE PHOSPHATASE INCREASED [None]
  - C-REACTIVE PROTEIN INCREASED [None]
  - ELECTROLYTE IMBALANCE [None]
  - GASTRITIS [None]
  - HEPATIC FUNCTION ABNORMAL [None]
  - HEPATIC STEATOSIS [None]
  - HYPOALBUMINAEMIA [None]
  - HYPOCALCAEMIA [None]
  - HYPOPROTEINAEMIA [None]
  - INSOMNIA [None]
  - NEUTROPENIA [None]
  - PANCYTOPENIA [None]
  - PYREXIA [None]
  - TRANSAMINASES INCREASED [None]
